FAERS Safety Report 5307859-4 (Version None)
Quarter: 2007Q2

REPORT INFORMATION
  Report Type: 
  Country: None (occurrence: None)
  Receive Date: 20070425
  Receipt Date: 20070416
  Transmission Date: 20071010
  Serious: Yes (Other)
  Sender: FDA-Public Use
  Company Number: GB-ABBOTT-07P-167-0361212-00

PATIENT
  Sex: Female

DRUGS (2)
  1. REDUCTIL [Suspect]
     Indication: OBESITY
     Route: 048
     Dates: start: 20070226, end: 20070227
  2. SULFASALAZINE [Concomitant]
     Indication: JUVENILE ARTHRITIS
     Route: 048
     Dates: end: 20070227

REACTIONS (2)
  - ABDOMINAL PAIN [None]
  - HAEMORRHAGE [None]
